FAERS Safety Report 25285352 (Version 1)
Quarter: 2025Q2

REPORT INFORMATION
  Report Type: Spontaneous
  Country: US (occurrence: US)
  Receive Date: 20250509
  Receipt Date: 20250509
  Transmission Date: 20250716
  Serious: No
  Sender: COLLEGIUM PHARMACEUTICAL
  Company Number: US-COLLEGIUM PHARMACEUTICAL, INC.-20240800671

PATIENT

DRUGS (4)
  1. XTAMPZA ER [Suspect]
     Active Substance: OXYCODONE
     Indication: Pain
     Route: 065
     Dates: start: 2022
  2. OXYCODONE [Concomitant]
     Active Substance: OXYCODONE
     Indication: Product used for unknown indication
     Route: 065
  3. DIAZEPAM [Concomitant]
     Active Substance: DIAZEPAM
     Indication: Product used for unknown indication
     Route: 065
  4. CHLORZOXAZONE [Concomitant]
     Active Substance: CHLORZOXAZONE
     Indication: Spinal pain
     Route: 065

REACTIONS (7)
  - Oral infection [Unknown]
  - Mouth swelling [Unknown]
  - Mastication disorder [Unknown]
  - Tooth disorder [Unknown]
  - Product dose omission issue [Unknown]
  - Loss of personal independence in daily activities [None]
  - Inability to afford medication [Unknown]

NARRATIVE: CASE EVENT DATE: 20230101
